FAERS Safety Report 21794132 (Version 1)
Quarter: 2022Q4

REPORT INFORMATION
  Report Type: Spontaneous
  Country: US (occurrence: None)
  Receive Date: 20221228
  Receipt Date: 20221228
  Transmission Date: 20230113
  Serious: Yes (Hospitalization)
  Sender: FDA-Public Use
  Company Number: None

PATIENT
  Age: 53 Year
  Sex: Male
  Weight: 70 kg

DRUGS (2)
  1. TECLISTAMAB [Suspect]
     Active Substance: TECLISTAMAB
     Indication: Plasma cell myeloma
     Route: 058
  2. TECLISTAMAB-CQYV [Concomitant]
     Active Substance: TECLISTAMAB-CQYV
     Dates: start: 20221222, end: 20221222

REACTIONS (7)
  - Confusional state [None]
  - Depressed level of consciousness [None]
  - Tachycardia [None]
  - Toxicity to various agents [None]
  - Neurotoxicity [None]
  - Meningitis [None]
  - Feeling hot [None]

NARRATIVE: CASE EVENT DATE: 20221222
